FAERS Safety Report 6434647-8 (Version None)
Quarter: 2009Q4

REPORT INFORMATION
  Report Type: 
  Country: None (occurrence: None)
  Receive Date: 20091110
  Receipt Date: 20091109
  Transmission Date: 20100525
  Serious: Yes (Other)
  Sender: FDA-Public Use
  Company Number: A0816001A

PATIENT
  Age: 62 Year
  Sex: Female

DRUGS (1)
  1. ALLI [Suspect]
     Route: 048
     Dates: start: 20091001, end: 20091107

REACTIONS (6)
  - CONSTIPATION [None]
  - DEFAECATION URGENCY [None]
  - DIARRHOEA [None]
  - DRUG INEFFECTIVE [None]
  - MALAISE [None]
  - RECTAL HAEMORRHAGE [None]
